FAERS Safety Report 5595242-6 (Version None)
Quarter: 2008Q1

REPORT INFORMATION
  Report Type: 
  Country: None (occurrence: None)
  Receive Date: 20080117
  Receipt Date: 20080109
  Transmission Date: 20080703
  Serious: Yes (Hospitalization)
  Sender: FDA-Public Use
  Company Number: FR-PFIZER INC-2008003227

PATIENT
  Sex: Female

DRUGS (14)
  1. AMLOR [Suspect]
     Route: 048
     Dates: start: 20061124, end: 20061209
  2. TRIATEC [Suspect]
     Route: 048
     Dates: start: 20061124, end: 20061209
  3. SECTRAL [Suspect]
     Route: 048
     Dates: start: 20061124, end: 20061209
  4. KARDEGIC [Suspect]
     Route: 048
     Dates: start: 20061124, end: 20061209
  5. FUMAFER [Suspect]
     Route: 048
     Dates: start: 20061124, end: 20061209
  6. LASIX [Concomitant]
  7. TAHOR [Concomitant]
  8. EUPRESSYL [Concomitant]
  9. ATARAX [Concomitant]
  10. LEXOMIL [Concomitant]
  11. SODIUM POLYSTYRENE SULFONATE [Concomitant]
  12. MOVICOL [Concomitant]
  13. PARACETAMOL [Concomitant]
  14. LANTUS [Concomitant]

REACTIONS (1)
  - TOXIC SKIN ERUPTION [None]
